FAERS Safety Report 6686519-1 (Version None)
Quarter: 2010Q2

REPORT INFORMATION
  Report Type: 
  Country: None (occurrence: None)
  Receive Date: 20100419
  Receipt Date: 20100408
  Transmission Date: 20101027
  Serious: Yes (Hospitalization)
  Sender: FDA-Public Use
  Company Number: TW-JNJFOC-20090704908

PATIENT
  Sex: Male
  Weight: 70 kg

DRUGS (5)
  1. PLACEBO (USTEKINUMAB) [Suspect]
     Indication: PSORIASIS
     Route: 058
  2. PLACEBO [Suspect]
     Route: 058
  3. ISONIAZID [Concomitant]
     Route: 048
  4. HYDROXYZINE [Concomitant]
     Route: 048
  5. ACETAMINOPHEN [Concomitant]
     Route: 048

REACTIONS (1)
  - ANAL ABSCESS [None]
